FAERS Safety Report 21774118 (Version 2)
Quarter: 2023Q1

REPORT INFORMATION
  Report Type: Spontaneous
  Country: IT (occurrence: IT)
  Receive Date: 20221223
  Receipt Date: 20230124
  Transmission Date: 20230418
  Serious: Yes (Death, Life-Threatening, Hospitalization, Other)
  Sender: FDA-Public Use
  Company Number: IT-GILEAD-2022-0610619

PATIENT
  Age: 66 Year
  Sex: Female
  Weight: 61 kg

DRUGS (3)
  1. YESCARTA [Suspect]
     Active Substance: AXICABTAGENE CILOLEUCEL
     Indication: Follicular lymphoma
     Dosage: UNK
     Route: 042
     Dates: start: 20220426, end: 20220426
  2. BACTRIM [Concomitant]
     Active Substance: SULFAMETHOXAZOLE\TRIMETHOPRIM
  3. VALACYCLOVIR [Concomitant]
     Active Substance: VALACYCLOVIR HYDROCHLORIDE

REACTIONS (11)
  - Septic shock [Unknown]
  - Cytokine release syndrome [Unknown]
  - Escherichia infection [Unknown]
  - Enterococcal bacteraemia [Unknown]
  - Pancytopenia [Unknown]
  - Cytomegalovirus infection reactivation [Unknown]
  - Klebsiella infection [Unknown]
  - Enterobacter infection [Unknown]
  - Staphylococcal sepsis [Unknown]
  - Cytopenia [Not Recovered/Not Resolved]
  - Infection [Fatal]

NARRATIVE: CASE EVENT DATE: 20220101
